FAERS Safety Report 5020808-1 (Version None)
Quarter: 2006Q2

REPORT INFORMATION
  Report Type: 
  Country: None (occurrence: None)
  Receive Date: 20060608
  Receipt Date: 20060510
  Transmission Date: 20061013
  Serious: Yes (Other)
  Sender: FDA-Public Use
  Company Number: DE-BRISTOL-MYERS SQUIBB COMPANY-13375647

PATIENT
  Sex: Female

DRUGS (1)
  1. CARMUBRIS [Suspect]
     Indication: CENTRAL NERVOUS SYSTEM LYMPHOMA

REACTIONS (3)
  - DYSPNOEA [None]
  - ERYTHEMA [None]
  - TACHYCARDIA [None]
